FAERS Safety Report 8922723 (Version 1)
Quarter: 2012Q4

REPORT INFORMATION
  Report Type: 
  Country: ZA (occurrence: ZA)
  Receive Date: 20121123
  Receipt Date: 20121123
  Transmission Date: 20130627
  Serious: Yes (Other)
  Sender: FDA-Public Use
  Company Number: PHHY2012ZA106938

PATIENT
  Age: 19 Year
  Sex: Female

DRUGS (2)
  1. ACLASTA [Suspect]
     Indication: OSTEOPENIA
     Dosage: 5 mg, UNK
     Route: 042
     Dates: start: 2011
  2. ACLASTA [Suspect]
     Dosage: 5 mg, UNK
     Route: 042
     Dates: start: 201211

REACTIONS (3)
  - Asthma [Unknown]
  - Dyspnoea [Unknown]
  - Chest discomfort [Unknown]
